FAERS Safety Report 11315325 (Version 1)
Quarter: 2015Q3

REPORT INFORMATION
  Report Type: Spontaneous
  Country: DE (occurrence: DE)
  Receive Date: 20150727
  Receipt Date: 20150727
  Transmission Date: 20151125
  Serious: Yes (Hospitalization, Other)
  Sender: FDA-Public Use
  Company Number: DE-HOSPIRA-2816330

PATIENT
  Age: 54 Year
  Sex: Female
  Weight: 77 kg

DRUGS (9)
  1. DECORTIN [Concomitant]
     Active Substance: PREDNISONE
     Indication: PREMEDICATION
  2. KEVATRIL [Concomitant]
     Active Substance: GRANISETRON HYDROCHLORIDE
     Indication: PREMEDICATION
  3. FENISTIL [Concomitant]
     Active Substance: DIMETHINDENE
     Indication: PREMEDICATION
  4. HERCEPTIN [Concomitant]
     Active Substance: TRASTUZUMAB
     Indication: BREAST CANCER
  5. CALCIUM [Concomitant]
     Active Substance: CALCIUM
     Indication: OSTEOPOROSIS
  6. RANITIDINE [Concomitant]
     Active Substance: RANITIDINE\RANITIDINE HYDROCHLORIDE
     Indication: PREMEDICATION
  7. PACLITAXEL. [Suspect]
     Active Substance: PACLITAXEL
     Indication: BREAST CANCER
     Route: 042
     Dates: start: 20070116, end: 20070207
  8. ALENDRONATE SODIUM. [Concomitant]
     Active Substance: ALENDRONATE SODIUM
     Indication: OSTEOPOROSIS
  9. ALFACALCIDOL [Concomitant]
     Active Substance: ALFACALCIDOL
     Indication: OSTEOPOROSIS

REACTIONS (9)
  - Restlessness [Unknown]
  - Cardiovascular disorder [Unknown]
  - Hypersensitivity [Unknown]
  - Back pain [Unknown]
  - Bronchospasm [Unknown]
  - Chest discomfort [Unknown]
  - Hot flush [Unknown]
  - Labile blood pressure [Unknown]
  - Tachycardia [Unknown]

NARRATIVE: CASE EVENT DATE: 20070207
